FAERS Safety Report 10009504 (Version 2)
Quarter: 2014Q2

REPORT INFORMATION
  Report Type: Spontaneous
  Country: US (occurrence: US)
  Receive Date: 20140313
  Receipt Date: 20140425
  Transmission Date: 20141212
  Serious: Yes (Death, Hospitalization)
  Sender: FDA-Public Use
  Company Number: US-B.I. PHARMACEUTICALS,INC./RIDGEFIELD-2014-BI-10955BP

PATIENT
  Age: 84 Year
  Sex: Male
  Weight: 83.91 kg

DRUGS (5)
  1. PRADAXA [Suspect]
     Indication: ATRIAL FIBRILLATION
     Dosage: 150 MG
     Route: 065
     Dates: start: 20110131, end: 20120307
  2. CARDIZEM [Concomitant]
     Dosage: 240 MG
     Route: 065
  3. DIGOXIN [Concomitant]
     Dosage: 0.125 MG
     Route: 065
  4. ASACOL [Concomitant]
     Route: 065
  5. FLOVENT HFA [Concomitant]
     Route: 065

REACTIONS (5)
  - Haemorrhage intracranial [Fatal]
  - Acute respiratory failure [Fatal]
  - Coagulopathy [Unknown]
  - Haematuria [Unknown]
  - Anaemia [Unknown]
